FAERS Safety Report 15554544 (Version 1)
Quarter: 2018Q4

REPORT INFORMATION
  Report Type: Spontaneous
  Country: US (occurrence: US)
  Receive Date: 20181026
  Receipt Date: 20181026
  Transmission Date: 20190205
  Serious: No
  Sender: FDA-Public Use
  Company Number: US-HIKMA PHARMACEUTICALS USA INC.-US-H14001-17-05144

PATIENT
  Age: 75 Year
  Sex: Male

DRUGS (2)
  1. MITIGARE [Suspect]
     Active Substance: COLCHICINE
     Indication: GOUT
     Route: 065
     Dates: start: 201710, end: 201710
  2. AMLODIPINE W/VALSARTAN [Concomitant]
     Active Substance: AMLODIPINE\VALSARTAN
     Indication: BLOOD PRESSURE INCREASED
     Route: 065

REACTIONS (2)
  - Pain [Unknown]
  - Product dose omission [Unknown]

NARRATIVE: CASE EVENT DATE: 201712
